FAERS Safety Report 8798909 (Version 1)
Quarter: 2012Q4

REPORT INFORMATION
  Report Type: Spontaneous
  Country: US (occurrence: None)
  Receive Date: 20120913
  Receipt Date: 20120913
  Transmission Date: 20130627
  Serious: Yes (Hospitalization)
  Sender: FDA-Public Use
  Company Number: DSA_59353_2012

PATIENT
  Age: 63 Year
  Sex: Male

DRUGS (3)
  1. METRONIDAZOLE 500 MG / 100 ML INTRAVENOUS INFUSION [Suspect]
     Indication: ABSCESS
     Route: 048
  2. METRONIDAZOLE 500 MG / 100 ML INTRAVENOUS INFUSION [Suspect]
     Indication: OSTEOMYELITIS
     Route: 048
  3. VANCOMYCIN [Concomitant]

REACTIONS (3)
  - Cerebellar ataxia [None]
  - Fall [None]
  - Neurotoxicity [None]
